FAERS Safety Report 10460711 (Version 2)
Quarter: 2014Q3

REPORT INFORMATION
  Report Type: Report from Study
  Country: BR (occurrence: BR)
  Receive Date: 20140918
  Receipt Date: 20140918
  Transmission Date: 20150326
  Serious: Yes (Other)
  Sender: FDA-Public Use
  Company Number: BR-BIOGENIDEC-2012BI044748

PATIENT
  Age: 51 Year
  Sex: Female
  Weight: 60 kg

DRUGS (2)
  1. AVONEX [Suspect]
     Active Substance: INTERFERON BETA-1A
     Indication: MULTIPLE SCLEROSIS
     Route: 030
     Dates: start: 20121004
  2. AVONEX [Suspect]
     Active Substance: INTERFERON BETA-1A
     Indication: MULTIPLE SCLEROSIS
     Route: 030
     Dates: start: 20120119, end: 20120927

REACTIONS (3)
  - Influenza like illness [Not Recovered/Not Resolved]
  - Pain [Not Recovered/Not Resolved]
  - Dysfunctional uterine bleeding [Unknown]

NARRATIVE: CASE EVENT DATE: 201203
